FAERS Safety Report 9086644 (Version 1)
Quarter: 2013Q1

REPORT INFORMATION
  Report Type: Report from Study
  Country: US (occurrence: US)
  Receive Date: 20130131
  Receipt Date: 20130131
  Transmission Date: 20140127
  Serious: No
  Sender: FDA-Public Use
  Company Number: US-ABBOTT-12P-163-0997652-00

PATIENT
  Age: 36 Year
  Sex: Male

DRUGS (2)
  1. HUMIRA [Suspect]
     Indication: PSORIASIS
     Dates: start: 20121003, end: 20121003
  2. HUMIRA [Suspect]
     Dates: start: 20121010

REACTIONS (6)
  - Nervousness [Recovering/Resolving]
  - Drug dose omission [Recovering/Resolving]
  - Wrong technique in drug usage process [Recovering/Resolving]
  - Incorrect dose administered [Recovering/Resolving]
  - Injection site erythema [Recovering/Resolving]
  - Injection site pruritus [Recovering/Resolving]
